FAERS Safety Report 16790526 (Version 3)
Quarter: 2019Q3

REPORT INFORMATION
  Report Type: Spontaneous
  Country: US (occurrence: US)
  Receive Date: 20190910
  Receipt Date: 20190930
  Transmission Date: 20191005
  Serious: No
  Sender: FDA-Public Use
  Company Number: US-PFIZER INC-2019388980

PATIENT
  Age: 52 Year
  Sex: Female

DRUGS (1)
  1. ALPRAZOLAM. [Suspect]
     Active Substance: ALPRAZOLAM
     Indication: PANIC DISORDER
     Dosage: 2 MG, 3X/DAY
     Route: 048
     Dates: start: 201901

REACTIONS (3)
  - Drug ineffective [Unknown]
  - Gastrooesophageal reflux disease [Unknown]
  - Irritability [Unknown]
